FAERS Safety Report 7864376-5 (Version None)
Quarter: 2011Q4

REPORT INFORMATION
  Report Type: 
  Country: None (occurrence: None)
  Receive Date: 20111028
  Receipt Date: 20111020
  Transmission Date: 20120403
  Serious: Yes (Hospitalization, Other)
  Sender: FDA-Public Use
  Company Number: NL-ABBOTT-11P-114-0866963-00

PATIENT
  Sex: Female
  Weight: 70 kg

DRUGS (3)
  1. ACETAMINOPHEN W/ CODEINE [Concomitant]
     Indication: RHEUMATOID ARTHRITIS
     Route: 048
     Dates: start: 20100101
  2. HUMIRA [Suspect]
     Indication: RHEUMATOID ARTHRITIS
     Route: 058
  3. HUMIRA [Suspect]
     Indication: RHEUMATOID ARTHRITIS
     Route: 058
     Dates: start: 20050801, end: 20090901

REACTIONS (9)
  - SKIN MASS [None]
  - HYPERSENSITIVITY [None]
  - PNEUMONIA [None]
  - SWOLLEN TONGUE [None]
  - PHARYNGEAL OEDEMA [None]
  - APHTHOUS STOMATITIS [None]
  - DEHYDRATION [None]
  - H1N1 INFLUENZA [None]
  - PRURITUS [None]
